FAERS Safety Report 4340690-5 (Version None)
Quarter: 2004Q2

REPORT INFORMATION
  Report Type: 
  Country: None (occurrence: None)
  Receive Date: 20040413
  Receipt Date: 20040329
  Transmission Date: 20050107
  Serious: Yes (Hospitalization)
  Sender: FDA-Public Use
  Company Number: 193817

PATIENT
  Age: 24 Month
  Sex: Female

DRUGS (2)
  1. AVONEX [Suspect]
     Indication: DRUG EXPOSURE DURING PREGNANCY
     Dosage: 30 MCG QW IM
     Dates: start: 19980101, end: 20001201
  2. AVONEX [Suspect]
     Indication: MULTIPLE SCLEROSIS
     Dosage: 30 MCG QW IM
     Dates: start: 19980101, end: 20001201

REACTIONS (5)
  - B-CELL TYPE ACUTE LEUKAEMIA [None]
  - BONE PAIN [None]
  - DRUG EXPOSURE DURING PREGNANCY [None]
  - PATHOLOGICAL FRACTURE [None]
  - UPPER LIMB FRACTURE [None]
